FAERS Safety Report 7304995-8 (Version None)
Quarter: 2011Q1

REPORT INFORMATION
  Report Type: 
  Country: None (occurrence: None)
  Receive Date: 20110222
  Receipt Date: 20100616
  Transmission Date: 20110831
  Serious: No
  Sender: FDA-Public Use
  Company Number: US-PFIZER INC-2010075751

PATIENT
  Sex: Female

DRUGS (1)
  1. XALATAN [Suspect]
     Indication: GLAUCOMA
     Dosage: 1X/DAY AT BEDTIME
     Route: 047

REACTIONS (3)
  - OCULAR HYPERAEMIA [None]
  - DRY EYE [None]
  - PRURITUS [None]
